FAERS Safety Report 8282498-4 (Version None)
Quarter: 2012Q2

REPORT INFORMATION
  Report Type: 
  Country: None (occurrence: None)
  Receive Date: 20120413
  Receipt Date: 20120404
  Transmission Date: 20120825
  Serious: Yes (Other)
  Sender: FDA-Public Use
  Company Number: CA-JNJFOC-20120402430

PATIENT
  Sex: Female
  Weight: 108.86 kg

DRUGS (3)
  1. REMICADE [Suspect]
     Indication: CROHN'S DISEASE
     Route: 042
     Dates: start: 20111220, end: 20111220
  2. REMICADE [Suspect]
     Route: 042
     Dates: start: 20040101
  3. STOOL SOFTENER [Suspect]
     Indication: CONSTIPATION
     Route: 065

REACTIONS (6)
  - HAEMATOCHEZIA [None]
  - INTESTINAL STENOSIS [None]
  - MATERNAL EXPOSURE DURING PREGNANCY [None]
  - CONSTIPATION [None]
  - PRE-ECLAMPSIA [None]
  - MUCOUS STOOLS [None]
